FAERS Safety Report 20160825 (Version 2)
Quarter: 2021Q4

REPORT INFORMATION
  Report Type: Report from Study
  Country: US (occurrence: US)
  Receive Date: 20211208
  Receipt Date: 20211224
  Transmission Date: 20220303
  Serious: Yes (Death, Hospitalization)
  Sender: FDA-Public Use
  Company Number: US-Insmed, Inc.-US-INS-20-02180

PATIENT
  Age: 66 Year
  Sex: Male

DRUGS (1)
  1. ARIKAYCE [Suspect]
     Active Substance: AMIKACIN
     Indication: Mycobacterium avium complex infection
     Dosage: 590 MILLIGRAM, QD
     Route: 055
     Dates: start: 202011

REACTIONS (5)
  - Chronic obstructive pulmonary disease [Fatal]
  - Dyspnoea [Unknown]
  - Product dose omission issue [Unknown]
  - Device leakage [Unknown]
  - Accidental underdose [Unknown]

NARRATIVE: CASE EVENT DATE: 20201101
